FAERS Safety Report 13760975 (Version 1)
Quarter: 2017Q3

REPORT INFORMATION
  Report Type: Other
  Country: US (occurrence: US)
  Receive Date: 20170717
  Receipt Date: 20170717
  Transmission Date: 20171127
  Serious: Yes (Other)
  Sender: FDA-Public Use
  Company Number: US-B. BRAUN MEDICAL INC.-2023420

PATIENT
  Age: 66 Year
  Sex: Female

DRUGS (9)
  1. SODIUM THIOSULFATE [Suspect]
     Active Substance: SODIUM THIOSULFATE
     Route: 023
  2. CEFEPIME [Concomitant]
     Active Substance: CEFEPIME HYDROCHLORIDE
  3. LIDOCAINE. [Suspect]
     Active Substance: LIDOCAINE
     Indication: CALCIPHYLAXIS
     Route: 023
  4. PIPERACILLIN AND TAZOBACTAM [Concomitant]
     Active Substance: PIPERACILLIN SODIUM\TAZOBACTAM SODIUM
  5. FLUCONAZOLE. [Concomitant]
     Active Substance: FLUCONAZOLE
  6. OXYGEN. [Concomitant]
     Active Substance: OXYGEN
  7. LEVOFLOXACIN. [Concomitant]
     Active Substance: LEVOFLOXACIN
  8. METRONIDAZOLE. [Concomitant]
     Active Substance: METRONIDAZOLE
  9. VANCOMYCIN HYDROCHLORIDE. [Concomitant]
     Active Substance: VANCOMYCIN HYDROCHLORIDE

REACTIONS (2)
  - Injection site abscess [Not Recovered/Not Resolved]
  - Product use in unapproved indication [Not Recovered/Not Resolved]
